FAERS Safety Report 8248465-1 (Version None)
Quarter: 2012Q1

REPORT INFORMATION
  Report Type: 
  Country: None (occurrence: None)
  Receive Date: 20120330
  Receipt Date: 20120320
  Transmission Date: 20120608
  Serious: Yes (Hospitalization)
  Sender: FDA-Public Use
  Company Number: CN-GILEAD-2012-0052955

PATIENT
  Age: 48 Year
  Sex: Male

DRUGS (1)
  1. ADEFOVIR DIPIVOXIL [Suspect]
     Indication: HEPATITIS B
     Dosage: UNK
     Route: 048
     Dates: start: 20050101

REACTIONS (4)
  - BLOOD PHOSPHORUS DECREASED [None]
  - FANCONI SYNDROME ACQUIRED [None]
  - GAIT DISTURBANCE [None]
  - BONE PAIN [None]
